FAERS Safety Report 9162273 (Version 1)
Quarter: 2013Q1

REPORT INFORMATION
  Report Type: Spontaneous
  Country: ES (occurrence: ES)
  Receive Date: 20130314
  Receipt Date: 20130314
  Transmission Date: 20140127
  Serious: Yes (Hospitalization, Other)
  Sender: FDA-Public Use
  Company Number: PHHY2013ES024326

PATIENT
  Age: 64 Year
  Sex: Male

DRUGS (6)
  1. TASIGNA [Suspect]
     Indication: CHRONIC MYELOID LEUKAEMIA
  2. RAMIPRIL [Concomitant]
  3. PANTOPRAZOLE [Concomitant]
  4. ATENOLOL [Concomitant]
  5. ATORVASTATIN [Concomitant]
  6. ALLOPURINOL [Concomitant]

REACTIONS (2)
  - Ischaemic cardiomyopathy [Recovered/Resolved]
  - Chest pain [Recovered/Resolved]
